FAERS Safety Report 7007208-X (Version None)
Quarter: 2010Q2

REPORT INFORMATION
  Report Type: 
  Country: None (occurrence: None)
  Receive Date: 20100225
  Receipt Date: 20091216
  Transmission Date: 20101027
  Serious: No
  Sender: FDA-Public Use
  Company Number: US-JNJFOC-20091205372

PATIENT
  Age: 4 Year
  Sex: Female
  Weight: 20.4119 kg

DRUGS (1)
  1. CHILDREN'S MOTRIN [Suspect]
     Indication: ACCIDENTAL EXPOSURE
     Dosage: IN 1 TOTAL, ORAL
     Route: 048

REACTIONS (1)
  - ACCIDENTAL DRUG INTAKE BY CHILD [None]
